FAERS Safety Report 8777556 (Version 2)
Quarter: 2012Q4

REPORT INFORMATION
  Report Type: 
  Country: US (occurrence: US)
  Receive Date: 20120912
  Receipt Date: 20121001
  Transmission Date: 20130627
  Serious: Yes (Hospitalization, Other)
  Sender: FDA-Public Use
  Company Number: US-PFIZER INC-2012221486

PATIENT
  Age: 65 Year
  Sex: Female
  Weight: 67.12 kg

DRUGS (5)
  1. LYRICA [Suspect]
     Indication: FIBROMYALGIA
     Dosage: UNK
     Dates: start: 2011
  2. LYRICA [Suspect]
     Indication: TOXIC NEUROPATHY
     Dosage: 100 mg, 3x/day
  3. ATENOLOL [Concomitant]
     Dosage: UNK
  4. LEVOTHYROXINE SODIUM [Concomitant]
     Dosage: UNK
  5. ATIVAN [Concomitant]
     Dosage: UNK

REACTIONS (3)
  - Colon cancer metastatic [Unknown]
  - Toxic neuropathy [Unknown]
  - Condition aggravated [Unknown]
